FAERS Safety Report 5121931-3 (Version None)
Quarter: 2006Q4

REPORT INFORMATION
  Report Type: 
  Country: None (occurrence: None)
  Receive Date: 20061006
  Receipt Date: 20060926
  Transmission Date: 20070319
  Serious: Yes (Disabling)
  Sender: FDA-Public Use
  Company Number: 2006UW18739

PATIENT
  Age: 16188 Day
  Sex: Female
  Weight: 72.6 kg

DRUGS (11)
  1. CRESTOR [Suspect]
     Indication: BLOOD CHOLESTEROL INCREASED
     Route: 048
     Dates: start: 20060101
  2. CRESTOR [Suspect]
     Route: 048
     Dates: start: 20060501
  3. ACTOS [Concomitant]
  4. GLUCOTROL XL [Concomitant]
  5. COZAAR [Concomitant]
  6. LORAZEPAM [Concomitant]
  7. MULTI-VITAMIN [Concomitant]
  8. ZANTAC [Concomitant]
  9. TUMS [Concomitant]
  10. GAVISCON [Concomitant]
  11. TYLENOL (CAPLET) [Concomitant]

REACTIONS (3)
  - ARTHRALGIA [None]
  - ASTHENIA [None]
  - DEAFNESS UNILATERAL [None]
